FAERS Safety Report 6624016-X (Version None)
Quarter: 2010Q1

REPORT INFORMATION
  Report Type: 
  Country: None (occurrence: None)
  Receive Date: 20100310
  Receipt Date: 20100226
  Transmission Date: 20100710
  Serious: Yes (Death, Hospitalization, Other)
  Sender: FDA-Public Use
  Company Number: FR-PFIZER INC-2009296931

PATIENT
  Age: 78 Year
  Sex: Male

DRUGS (13)
  1. HYDROXYZINE HCL [Suspect]
     Dosage: 25 MG, 1X/DAY
     Route: 048
     Dates: start: 20091011, end: 20091015
  2. CONTRAMAL [Suspect]
     Dosage: 100 MG, 2X/DAY
     Route: 048
     Dates: start: 20091010, end: 20091014
  3. TAMSULOSIN [Concomitant]
     Dosage: UNK
     Dates: start: 20091014, end: 20091016
  4. CARDENSIEL [Concomitant]
  5. COVERSYL [Concomitant]
  6. BUMEX [Concomitant]
  7. HEPARIN CALCIUM [Concomitant]
  8. PREVISCAN [Concomitant]
  9. DOLIPRANE [Concomitant]
  10. ORBENIN CAP [Concomitant]
     Indication: ENDOCARDITIS STAPHYLOCOCCAL
     Dosage: 4 G, 1X/DAY
     Dates: start: 20091009
  11. RIFADIN [Concomitant]
     Indication: ENDOCARDITIS STAPHYLOCOCCAL
     Dosage: UNK
     Dates: start: 20091009
  12. RIFADIN [Concomitant]
  13. GENTALLINE [Concomitant]
     Indication: ENDOCARDITIS STAPHYLOCOCCAL
     Dosage: UNK
     Dates: start: 20091009

REACTIONS (4)
  - CEREBRAL INFARCTION [None]
  - CONFUSIONAL STATE [None]
  - GLOMERULONEPHROPATHY [None]
  - RENAL FAILURE ACUTE [None]
